FAERS Safety Report 6300192-3 (Version None)
Quarter: 2009Q3

REPORT INFORMATION
  Report Type: 
  Country: None (occurrence: None)
  Receive Date: 20090804
  Receipt Date: 20090629
  Transmission Date: 20100115
  Serious: Yes (Other)
  Sender: FDA-Public Use
  Company Number: DSU-2009-01203

PATIENT
  Age: 63 Year
  Sex: Female
  Weight: 103 kg

DRUGS (2)
  1. OLMESARTAN MEDOXOMIL [Suspect]
     Indication: HYPERTENSION
     Dosage: (20 MG), PER ORAL
     Route: 048
     Dates: start: 20040101
  2. UNSPECIFIED PHARMACY-COMPOUNDED MEDICATION TO ^REMOVE BODY FAT^ [Concomitant]

REACTIONS (6)
  - HEADACHE [None]
  - HYPERTENSION [None]
  - NAUSEA [None]
  - NECK PAIN [None]
  - NERVOUSNESS [None]
  - PRODUCT SUBSTITUTION ISSUE [None]
